FAERS Safety Report 23331261 (Version 3)
Quarter: 2024Q3

REPORT INFORMATION
  Report Type: Spontaneous
  Country: ES (occurrence: ES)
  Receive Date: 20231222
  Receipt Date: 20240725
  Transmission Date: 20241017
  Serious: Yes (Hospitalization)
  Sender: SANDOZ
  Company Number: ES-009507513-2207ESP000541

PATIENT
  Age: 67 Year
  Sex: Male
  Weight: 70 kg

DRUGS (43)
  1. FLUOROURACIL [Suspect]
     Active Substance: FLUOROURACIL
     Dosage: 1000 MILLIGRAM/SQ. METER, QD
     Route: 042
     Dates: start: 20220124, end: 20220127
  2. FLUOROURACIL [Suspect]
     Active Substance: FLUOROURACIL
     Dosage: 1000 MILLIGRAM/SQ. METER, QD
     Route: 042
     Dates: start: 20220214, end: 20220218
  3. FLUOROURACIL [Suspect]
     Active Substance: FLUOROURACIL
     Indication: Squamous cell carcinoma of head and neck
     Dosage: 800 MILLIGRAM/SQ. METER, QD
     Route: 042
     Dates: start: 20220314, end: 20220318
  4. FLUOROURACIL [Suspect]
     Active Substance: FLUOROURACIL
     Dosage: 800 MILLIGRAM/SQ. METER, QD
     Route: 042
     Dates: start: 20220404, end: 20220408
  5. FLUOROURACIL [Suspect]
     Active Substance: FLUOROURACIL
     Dosage: 800 MILLIGRAM/SQ. METER, QD
     Route: 042
     Dates: start: 20220502, end: 20220506
  6. CARBOPLATIN [Suspect]
     Active Substance: CARBOPLATIN
     Indication: Squamous cell carcinoma of head and neck
     Dosage: AREA UNDER THE CURVE (AUC) 4, Q3W
     Route: 042
     Dates: start: 20220314, end: 20220404
  7. CARBOPLATIN [Suspect]
     Active Substance: CARBOPLATIN
     Dosage: AREA UNDER THE CURVE (AUC) 4, Q3W
     Route: 042
     Dates: start: 20220502, end: 20220502
  8. CARBOPLATIN [Suspect]
     Active Substance: CARBOPLATIN
     Dosage: AREA UNDER THE CURVE (AUC) 5, Q3W
     Route: 042
     Dates: start: 20220124, end: 20220214
  9. PEMBROLIZUMAB [Suspect]
     Active Substance: PEMBROLIZUMAB
     Indication: Squamous cell carcinoma of head and neck
     Dosage: 200 MILLIGRAM, 1Q3W
     Route: 042
     Dates: start: 20220124, end: 20220502
  10. ACYCLOVIR [Concomitant]
     Active Substance: ACYCLOVIR
     Indication: Product used for unknown indication
     Dosage: UNK
     Route: 065
     Dates: start: 20220621, end: 20220816
  11. ACYCLOVIR [Concomitant]
     Active Substance: ACYCLOVIR
     Dosage: UNK
     Route: 065
     Dates: start: 20220621, end: 20220816
  12. ASCORBIC ACID\POTASSIUM BICARBONATE [Concomitant]
     Active Substance: ASCORBIC ACID\POTASSIUM BICARBONATE
     Indication: Product used for unknown indication
     Dosage: UNK
     Route: 065
     Dates: start: 20220706, end: 20221119
  13. ASCORBIC ACID\POTASSIUM BICARBONATE [Concomitant]
     Active Substance: ASCORBIC ACID\POTASSIUM BICARBONATE
     Dosage: UNK
     Route: 065
     Dates: start: 20220706, end: 20221119
  14. DEXKETOPROFEN [Concomitant]
     Active Substance: DEXKETOPROFEN
     Indication: Product used for unknown indication
     Dosage: UNK
     Route: 065
     Dates: start: 20220619, end: 20220623
  15. DEXKETOPROFEN [Concomitant]
     Active Substance: DEXKETOPROFEN
     Dosage: UNK
     Route: 065
     Dates: start: 20220619, end: 20220623
  16. EFFERALGAN [Concomitant]
     Active Substance: ACETAMINOPHEN
     Indication: Product used for unknown indication
     Dosage: UNK
     Route: 065
     Dates: start: 202110, end: 20220706
  17. ESOMEPRAZOLE [Concomitant]
     Active Substance: ESOMEPRAZOLE
     Indication: Product used for unknown indication
     Dosage: UNK
     Route: 065
     Dates: start: 20220705, end: 20220706
  18. ESOMEPRAZOLE [Concomitant]
     Active Substance: ESOMEPRAZOLE
     Dosage: UNK
     Route: 065
     Dates: start: 20220705, end: 20220706
  19. FILGRASTIM [Concomitant]
     Active Substance: FILGRASTIM
     Indication: Product used for unknown indication
     Dosage: UNK
     Route: 065
     Dates: start: 20220608, end: 20220611
  20. LANSOPRAZOLE [Concomitant]
     Active Substance: LANSOPRAZOLE
     Dosage: 30MG, 15MG, UNK
     Route: 065
  21. LANSOPRAZOLE [Concomitant]
     Active Substance: LANSOPRAZOLE
     Indication: Product used for unknown indication
     Dosage: UNK
     Route: 065
     Dates: start: 20220706
  22. LANSOPRAZOLE [Concomitant]
     Active Substance: LANSOPRAZOLE
     Dosage: UNK
     Route: 065
     Dates: start: 20220706
  23. LUPENOX [Concomitant]
     Indication: Product used for unknown indication
     Dosage: UNK
     Route: 065
     Dates: start: 20220608, end: 20220611
  24. LUPENOX [Concomitant]
     Dosage: UNK
     Route: 065
     Dates: start: 20220608, end: 20220611
  25. POLYETHYLENE GLYCOLS [Concomitant]
     Active Substance: POLYETHYLENE GLYCOLS
     Indication: Product used for unknown indication
     Dosage: UNK
     Route: 065
     Dates: start: 20220606, end: 20220706
  26. MAGNESIUM [Concomitant]
     Active Substance: MAGNESIUM
     Indication: Product used for unknown indication
     Dosage: UNK
     Route: 065
     Dates: start: 20220705, end: 20220706
  27. MAGNESIUM [Concomitant]
     Active Substance: MAGNESIUM
     Dosage: UNK
     Route: 065
     Dates: start: 20220705, end: 20220706
  28. Magnogene [Concomitant]
     Indication: Product used for unknown indication
     Dosage: UNK
     Route: 065
     Dates: start: 20220706, end: 20220816
  29. METOCLOPRAMIDE [Concomitant]
     Active Substance: METOCLOPRAMIDE
     Indication: Product used for unknown indication
     Dosage: UNK
     Route: 065
     Dates: start: 20220605, end: 20220605
  30. METOCLOPRAMIDE [Concomitant]
     Active Substance: METOCLOPRAMIDE
     Dosage: UNK
     Route: 065
     Dates: start: 20220605, end: 20220605
  31. MORPHINE [Concomitant]
     Active Substance: MORPHINE
     Indication: Product used for unknown indication
     Dosage: UNK
     Route: 065
     Dates: start: 20220605, end: 20220605
  32. MORPHINE [Concomitant]
     Active Substance: MORPHINE
     Dosage: UNK
     Route: 065
     Dates: start: 20220605, end: 20220605
  33. NEUPOGEN [Concomitant]
     Active Substance: FILGRASTIM
     Indication: Product used for unknown indication
     Dosage: UNK
     Route: 065
     Dates: start: 20220608, end: 20220611
  34. OMEPRAZOLE [Concomitant]
     Active Substance: OMEPRAZOLE
     Indication: Product used for unknown indication
     Dosage: UNK
     Route: 065
     Dates: start: 202110, end: 20220608
  35. ONDANSETRON [Concomitant]
     Active Substance: ONDANSETRON
     Indication: Product used for unknown indication
     Dosage: UNK
     Route: 065
     Dates: start: 20220605, end: 20220605
  36. ONDANSETRON [Concomitant]
     Active Substance: ONDANSETRON
     Dosage: UNK
     Route: 065
     Dates: start: 20220605, end: 20220605
  37. ONDANSETRON [Concomitant]
     Active Substance: ONDANSETRON
     Dosage: UNK, 4MG, UNK, 8MG, 4MG, 8MG
     Route: 065
  38. PANTOPRAZOLE [Concomitant]
     Active Substance: PANTOPRAZOLE
     Indication: Product used for unknown indication
     Dosage: UNK
     Route: 065
     Dates: start: 20220608, end: 20220705
  39. PANTOPRAZOLE [Concomitant]
     Active Substance: PANTOPRAZOLE
     Dosage: UNK
     Route: 065
     Dates: start: 20220608, end: 20220705
  40. POTASSIUM [Concomitant]
     Active Substance: POTASSIUM
     Indication: Product used for unknown indication
     Dosage: UNK
     Route: 065
     Dates: start: 20220605, end: 20220706
  41. POTASSIUM [Concomitant]
     Active Substance: POTASSIUM
     Dosage: UNK
     Route: 065
     Dates: start: 20220705, end: 20220706
  42. SULFAMETHOXAZOLE\TRIMETHOPRIM [Concomitant]
     Active Substance: SULFAMETHOXAZOLE\TRIMETHOPRIM
     Indication: Product used for unknown indication
     Dosage: UNK
     Route: 065
     Dates: start: 20220706, end: 20220929
  43. SULFAMETHOXAZOLE\TRIMETHOPRIM [Concomitant]
     Active Substance: SULFAMETHOXAZOLE\TRIMETHOPRIM
     Indication: Product used for unknown indication
     Dosage: UNK
     Route: 065
     Dates: start: 20220706, end: 20220929

REACTIONS (2)
  - Haemophagocytic lymphohistiocytosis [Recovered/Resolved]
  - Febrile neutropenia [Recovered/Resolved]

NARRATIVE: CASE EVENT DATE: 20220606
